FAERS Safety Report 25184734 (Version 1)
Quarter: 2025Q2

REPORT INFORMATION
  Report Type: Spontaneous
  Country: US (occurrence: US)
  Receive Date: 20250410
  Receipt Date: 20250410
  Transmission Date: 20250716
  Serious: Yes (Other)
  Sender: AMGEN
  Company Number: US-AMGEN-USASP2025064347

PATIENT
  Age: 66 Year
  Sex: Male

DRUGS (8)
  1. CARFILZOMIB [Suspect]
     Active Substance: CARFILZOMIB
     Indication: Plasma cell myeloma
     Route: 065
  2. INFLIXIMAB [Suspect]
     Active Substance: INFLIXIMAB
     Indication: Eosinophilic colitis
     Route: 065
  3. INFLIXIMAB [Suspect]
     Active Substance: INFLIXIMAB
     Indication: Off label use
  4. PREDNISONE [Suspect]
     Active Substance: PREDNISONE
     Indication: Eosinophilic colitis
     Route: 065
  5. PREDNISONE [Suspect]
     Active Substance: PREDNISONE
     Indication: Off label use
  6. LENALIDOMIDE [Suspect]
     Active Substance: LENALIDOMIDE
     Indication: Plasma cell myeloma
     Route: 065
  7. DEXAMETHASONE [Suspect]
     Active Substance: DEXAMETHASONE
     Indication: Plasma cell myeloma
     Route: 065
  8. DARATUMUMAB [Concomitant]
     Active Substance: DARATUMUMAB

REACTIONS (6)
  - Cardiomyopathy [Unknown]
  - Plasma cell myeloma recurrent [Unknown]
  - Eosinophilic colitis [Unknown]
  - Drug effective for unapproved indication [Unknown]
  - Therapy partial responder [Unknown]
  - Off label use [Unknown]
